FAERS Safety Report 8301330-3 (Version None)
Quarter: 2012Q2

REPORT INFORMATION
  Report Type: 
  Country: None (occurrence: None)
  Receive Date: 20120420
  Receipt Date: 20120417
  Transmission Date: 20120825
  Serious: Yes (Other)
  Sender: FDA-Public Use
  Company Number: FR-BAYER-2012-037839

PATIENT
  Sex: Male

DRUGS (1)
  1. NEXAVAR [Suspect]
     Indication: HEPATIC NEOPLASM MALIGNANT
     Dosage: DAILY DOSE 200 MG

REACTIONS (3)
  - ABDOMINAL PAIN [None]
  - ATRIAL FIBRILLATION [None]
  - MUSCULOSKELETAL CHEST PAIN [None]
